FAERS Safety Report 7661732-5 (Version None)
Quarter: 2011Q3

REPORT INFORMATION
  Report Type: 
  Country: None (occurrence: None)
  Receive Date: 20110805
  Receipt Date: 20101025
  Transmission Date: 20111222
  Serious: No
  Sender: FDA-Public Use
  Company Number: US-ABBOTT-10P-163-0681462-00

PATIENT
  Sex: Male
  Weight: 111.68 kg

DRUGS (4)
  1. NIASPAN [Suspect]
     Indication: BLOOD CHOLESTEROL
     Dates: start: 20100801, end: 20101025
  2. BENAZATRIL HCL [Concomitant]
     Indication: ARRHYTHMIA
  3. NEXIUM [Concomitant]
     Indication: PRODUCT USED FOR UNKNOWN INDICATION
  4. CARVEDILOL [Concomitant]
     Indication: CARDIAC DISORDER

REACTIONS (2)
  - SKIN BURNING SENSATION [None]
  - BODY TEMPERATURE DECREASED [None]
